FAERS Safety Report 18171844 (Version 1)
Quarter: 2020Q3

REPORT INFORMATION
  Report Type: Report from Study
  Country: CA (occurrence: CA)
  Receive Date: 20200819
  Receipt Date: 20200819
  Transmission Date: 20201103
  Serious: Yes (Other)
  Sender: FDA-Public Use
  Company Number: NVSC2019CA085085

PATIENT
  Age: 35 Year
  Sex: Female

DRUGS (10)
  1. COSENTYX [Suspect]
     Active Substance: SECUKINUMAB
     Dosage: 300 MG, QMO
     Route: 058
  2. INDOMETHACIN. [Concomitant]
     Active Substance: INDOMETHACIN
     Indication: PRODUCT USED FOR UNKNOWN INDICATION
     Dosage: UNK
     Route: 065
  3. METHOTREXATE. [Concomitant]
     Active Substance: METHOTREXATE
     Indication: PRODUCT USED FOR UNKNOWN INDICATION
     Dosage: 15 MG, QW
     Route: 058
     Dates: start: 201811
  4. COSENTYX [Suspect]
     Active Substance: SECUKINUMAB
     Indication: PSORIATIC ARTHROPATHY
     Dosage: 300 MG, QW
     Route: 058
     Dates: start: 20191209
  5. COSENTYX [Suspect]
     Active Substance: SECUKINUMAB
     Dosage: 450, MG, QMO (300MG DAY 1 OF THE MONTH AND 150 MG DAY 15TH OF THE MONTH)
     Route: 058
     Dates: start: 20200505, end: 20200722
  6. COSENTYX [Suspect]
     Active Substance: SECUKINUMAB
     Dosage: 450 MG, QMO (300MG DAY 1 OF THE MONTH AND 150 MG DAY 15TH OF THE MONTH)
     Route: 058
  7. SIMPONI [Concomitant]
     Active Substance: GOLIMUMAB
     Indication: PRODUCT USED FOR UNKNOWN INDICATION
     Dosage: UNK
     Route: 065
  8. PLAQUENIL [Concomitant]
     Active Substance: HYDROXYCHLOROQUINE SULFATE
     Indication: PRODUCT USED FOR UNKNOWN INDICATION
     Dosage: UNK
     Route: 065
  9. COSENTYX [Suspect]
     Active Substance: SECUKINUMAB
     Dosage: 450 MG, QMO (300MG DAY 1 OF THE MONTH AND 150 MG DAY 15TH OF THE MONTH)
     Route: 058
     Dates: start: 20200306
  10. HUMIRA [Concomitant]
     Active Substance: ADALIMUMAB
     Indication: PRODUCT USED FOR UNKNOWN INDICATION
     Dosage: UNK
     Route: 065

REACTIONS (20)
  - Rhinorrhoea [Unknown]
  - Inappropriate schedule of product administration [Unknown]
  - Psoriatic arthropathy [Unknown]
  - Ear disorder [Unknown]
  - Drug ineffective [Unknown]
  - Vomiting [Unknown]
  - Gastroenteritis [Unknown]
  - Influenza [Unknown]
  - Feeling abnormal [Unknown]
  - Dyspnoea [Unknown]
  - Sinusitis [Unknown]
  - Oropharyngeal pain [Unknown]
  - Product prescribing error [Unknown]
  - Vaginal infection [Recovering/Resolving]
  - Nasopharyngitis [Unknown]
  - Bronchitis [Unknown]
  - Cough [Recovered/Resolved]
  - Synovitis [Unknown]
  - Illness [Unknown]
  - Infection [Unknown]

NARRATIVE: CASE EVENT DATE: 201912
